FAERS Safety Report 6618257-5 (Version None)
Quarter: 2010Q1

REPORT INFORMATION
  Report Type: 
  Country: None (occurrence: None)
  Receive Date: 20100308
  Receipt Date: 20100225
  Transmission Date: 20100710
  Serious: Yes (Other)
  Sender: FDA-Public Use
  Company Number: US-JNJFOC-20100206253

PATIENT
  Age: 59 Year
  Sex: Female
  Weight: 90.72 kg

DRUGS (5)
  1. TYLENOL [Suspect]
     Indication: ARTHRALGIA
     Dosage: 1300 MG 1 TO 2 TIMES EVERY DAY
     Route: 048
  2. TYLENOL [Suspect]
     Indication: SCIATICA
     Dosage: 1300 MG 1 TO 2 TIMES EVERY DAY
     Route: 048
  3. ACTOS [Concomitant]
     Indication: DIABETES MELLITUS
  4. AMARYL [Concomitant]
     Indication: DIABETES MELLITUS
  5. METFORMIN HYDROCHLORIDE [Concomitant]
     Indication: DIABETES MELLITUS

REACTIONS (6)
  - COUGH [None]
  - DYSPNOEA [None]
  - MALAISE [None]
  - MUCOUS MEMBRANE DISORDER [None]
  - PRODUCT QUALITY ISSUE [None]
  - WHEEZING [None]
